FAERS Safety Report 7377781-0 (Version None)
Quarter: 2011Q1

REPORT INFORMATION
  Report Type: 
  Country: None (occurrence: None)
  Receive Date: 20110328
  Receipt Date: 20110318
  Transmission Date: 20110831
  Serious: Yes (Hospitalization)
  Sender: FDA-Public Use
  Company Number: BR-TYCO HEALTHCARE/MALLINCKRODT-T201100614

PATIENT
  Age: 29 Year
  Sex: Female
  Weight: 106 kg

DRUGS (1)
  1. OPTIRAY 350 [Suspect]
     Indication: COMPUTERISED TOMOGRAM
     Dosage: 120 ML, SINGLE
     Route: 042
     Dates: start: 20110314, end: 20110314

REACTIONS (1)
  - ANAPHYLACTIC SHOCK [None]
